FAERS Safety Report 17068356 (Version 3)
Quarter: 2020Q1

REPORT INFORMATION
  Report Type: Spontaneous
  Country: US (occurrence: US)
  Receive Date: 20191123
  Receipt Date: 20200316
  Transmission Date: 20200409
  Serious: No
  Sender: FDA-Public Use
  Company Number: US-TEVA-2019-US-1140373

PATIENT
  Sex: Female

DRUGS (8)
  1. CLONAZEPAM TEVA [Suspect]
     Active Substance: CLONAZEPAM
     Dosage: ONE TABLET TWICE A DAY
     Route: 065
     Dates: start: 20191130, end: 20191201
  2. VITAMIN D3 [Concomitant]
     Active Substance: CHOLECALCIFEROL
  3. ELIQUIS [Concomitant]
     Active Substance: APIXABAN
     Route: 065
  4. ROSUVASTATIN. [Concomitant]
     Active Substance: ROSUVASTATIN
     Route: 065
  5. CARVEDILOL. [Concomitant]
     Active Substance: CARVEDILOL
     Route: 065
  6. VITAMINES B [Concomitant]
  7. FISH OIL [Concomitant]
     Active Substance: FISH OIL
  8. CLONAZEPAM TEVA [Suspect]
     Active Substance: CLONAZEPAM
     Indication: ANXIETY
     Dosage: 1 MILLIGRAM DAILY; TAKE ONE TABLET IN THE MORNING AND ONE IN THE EVENING
     Route: 065
     Dates: start: 20191114, end: 20191116

REACTIONS (12)
  - Confusional state [Unknown]
  - Fear [Unknown]
  - Feeling abnormal [Unknown]
  - Dizziness [Unknown]
  - Product dose omission [Unknown]
  - Gait disturbance [Unknown]
  - Asthenia [Unknown]
  - Anxiety [Unknown]
  - Abnormal behaviour [Unknown]
  - Wrong technique in product usage process [Unknown]
  - Movement disorder [Unknown]
  - Somnolence [Unknown]

NARRATIVE: CASE EVENT DATE: 20191114
